FAERS Safety Report 8319735 (Version 2)
Quarter: 2013Q4

REPORT INFORMATION
  Report Type: Spontaneous
  Country: US (occurrence: US)
  Receive Date: 20120103
  Receipt Date: 20131226
  Transmission Date: 20140711
  Serious: Yes (Other)
  Sender: FDA-Public Use
  Company Number: US-BAYER-2012-000098

PATIENT
  Age: 33 Year
  Sex: Female
  Weight: 87.98 kg

DRUGS (2)
  1. YAZ [Suspect]
  2. YASMIN [Suspect]

REACTIONS (4)
  - Gallbladder disorder [None]
  - Cholelithiasis [None]
  - Pain [None]
  - Injury [None]
